FAERS Safety Report 23992163 (Version 1)
Quarter: 2024Q2

REPORT INFORMATION
  Report Type: Spontaneous
  Country: RU (occurrence: RU)
  Receive Date: 20240620
  Receipt Date: 20240620
  Transmission Date: 20240716
  Serious: Yes (Other)
  Sender: FDA-Public Use
  Company Number: RU-ROCHE-3579192

PATIENT
  Age: 56 Year
  Sex: Male

DRUGS (4)
  1. ATEZOLIZUMAB [Suspect]
     Active Substance: ATEZOLIZUMAB
     Indication: Lung neoplasm malignant
     Dosage: RECENT DOSE ON 02/FEB/2021? FREQUENCY TEXT:4 CYCLES
     Route: 041
     Dates: start: 20210908, end: 20211110
  2. BEVACIZUMAB [Suspect]
     Active Substance: BEVACIZUMAB
     Indication: Lung neoplasm malignant
     Dosage: RECENT DOSE ON 02/FEB/2021
     Route: 042
     Dates: start: 20210908, end: 20211110
  3. CARBOPLATIN [Suspect]
     Active Substance: CARBOPLATIN
     Indication: Lung neoplasm malignant
     Route: 042
     Dates: start: 20210908, end: 20211110
  4. PACLITAXEL [Suspect]
     Active Substance: PACLITAXEL
     Indication: Lung neoplasm malignant
     Route: 042
     Dates: start: 20210908, end: 20211110

REACTIONS (2)
  - Alopecia [Unknown]
  - Lung neoplasm malignant [Unknown]
